FAERS Safety Report 4751007-6 (Version None)
Quarter: 2005Q3

REPORT INFORMATION
  Report Type: 
  Country: None (occurrence: None)
  Receive Date: 20050824
  Receipt Date: 20050728
  Transmission Date: 20060218
  Serious: Yes (Hospitalization)
  Sender: FDA-Public Use
  Company Number: US-BOEHRINGER INGELHEIM PHARMACEUTICALS, INC.-2005-BP-12821BP

PATIENT
  Age: 83 Year
  Sex: Male

DRUGS (5)
  1. FLOMAX [Suspect]
     Indication: MICTURITION DISORDER
     Route: 048
     Dates: start: 20050713, end: 20050721
  2. CARDURA [Suspect]
     Indication: HYPERTENSION
  3. FLOVENT [Concomitant]
     Indication: ASTHMA
  4. ALBUTEROL [Concomitant]
     Indication: ASTHMA
  5. ALLOPURINOL [Concomitant]

REACTIONS (7)
  - ANXIETY [None]
  - ASTHENIA [None]
  - CARDIAC FAILURE CONGESTIVE [None]
  - EYELID OEDEMA [None]
  - INSOMNIA [None]
  - PITTING OEDEMA [None]
  - RESPIRATORY DISTRESS [None]
